FAERS Safety Report 16740502 (Version 6)
Quarter: 2020Q3

REPORT INFORMATION
  Report Type: Report from Study
  Country: CZ (occurrence: CZ)
  Receive Date: 20190826
  Receipt Date: 20191104
  Transmission Date: 20201105
  Serious: Yes (Hospitalization)
  Sender: FDA-Public Use
  Company Number: CZ-JNJFOC-20190819986

PATIENT
  Age: 72 Year
  Sex: Male
  Weight: 83.9 kg

DRUGS (33)
  1. GLUCOPHAGE [Concomitant]
     Active Substance: METFORMIN HYDROCHLORIDE
     Route: 048
     Dates: start: 20190118, end: 20190120
  2. HUMALOG [Concomitant]
     Active Substance: INSULIN LISPRO
     Dosage: 30 UNIT
     Route: 058
     Dates: start: 20190115, end: 20190115
  3. HUMALOG [Concomitant]
     Active Substance: INSULIN LISPRO
     Dosage: 18 UNIT
     Route: 058
     Dates: start: 20190117, end: 20190117
  4. RENVELA [Concomitant]
     Active Substance: SEVELAMER CARBONATE
     Route: 048
     Dates: start: 20180116, end: 20180116
  5. VEROSPIRON [Concomitant]
     Active Substance: SPIRONOLACTONE
     Indication: HYPERTENSION
     Route: 048
     Dates: start: 20190831
  6. FRAXIPARIN [Concomitant]
     Active Substance: NADROPARIN CALCIUM
     Indication: THROMBOSIS PROPHYLAXIS
     Route: 058
     Dates: start: 20190815, end: 20190829
  7. HUMULIN R [Concomitant]
     Active Substance: INSULIN HUMAN
     Dosage: 18 UNIT
     Route: 058
     Dates: start: 20190821, end: 20190830
  8. BELOGENT [Concomitant]
     Indication: ERYTHEMA
     Dosage: 1 UNIT
     Route: 061
     Dates: start: 20190821, end: 20190830
  9. PRESTARIUM [Concomitant]
     Active Substance: PERINDOPRIL
     Route: 048
     Dates: start: 20181218, end: 20190820
  10. PRESTARIUM [Concomitant]
     Active Substance: PERINDOPRIL
     Route: 048
     Dates: start: 20190821, end: 20190830
  11. KAPIDIN [Concomitant]
     Active Substance: LERCANIDIPINE HYDROCHLORIDE
     Indication: HYPERTENSION
     Route: 048
     Dates: start: 2005, end: 20190204
  12. HUMALOG [Concomitant]
     Active Substance: INSULIN LISPRO
     Dosage: 30 UNIT
     Route: 058
     Dates: start: 20190116, end: 20190116
  13. CONCOR COR [Concomitant]
     Active Substance: BISOPROLOL FUMARATE
     Indication: HYPERTENSION
     Route: 048
     Dates: start: 20190831
  14. HUMULIN R [Concomitant]
     Active Substance: INSULIN HUMAN
     Indication: DIABETES MELLITUS
     Dosage: 18 UNIT
     Route: 058
     Dates: start: 20190831
  15. VENETOCLAX. [Suspect]
     Active Substance: VENETOCLAX
     Indication: CHRONIC LYMPHOCYTIC LEUKAEMIA
     Route: 048
     Dates: start: 20190115, end: 20190812
  16. HUMULIN R [Concomitant]
     Active Substance: INSULIN HUMAN
     Dosage: 18 UNIT
     Route: 058
     Dates: start: 20190821, end: 20190830
  17. PRESTARIUM [Concomitant]
     Active Substance: PERINDOPRIL
     Indication: HYPERTENSION
     Route: 048
     Dates: start: 20181120, end: 20181217
  18. KAPIDIN [Concomitant]
     Active Substance: LERCANIDIPINE HYDROCHLORIDE
     Route: 048
     Dates: start: 20190205, end: 20190820
  19. HUMALOG [Concomitant]
     Active Substance: INSULIN LISPRO
     Indication: DIABETES MELLITUS
     Dosage: 34 UNIT
     Route: 058
     Dates: start: 2013, end: 20190113
  20. HUMALOG [Concomitant]
     Active Substance: INSULIN LISPRO
     Dosage: 23 UNIT
     Route: 058
     Dates: start: 20190118, end: 20190120
  21. FURON                              /00032601/ [Concomitant]
     Active Substance: FUROSEMIDE
     Indication: DIURETIC THERAPY
     Route: 048
     Dates: start: 20190115, end: 20190115
  22. FURON                              /00032601/ [Concomitant]
     Active Substance: FUROSEMIDE
     Route: 048
     Dates: start: 20190115, end: 20190115
  23. PRESTARIUM [Concomitant]
     Active Substance: PERINDOPRIL
     Route: 048
     Dates: start: 20190831
  24. GLUCOPHAGE [Concomitant]
     Active Substance: METFORMIN HYDROCHLORIDE
     Route: 048
     Dates: start: 20190123, end: 20190815
  25. HUMALOG [Concomitant]
     Active Substance: INSULIN LISPRO
     Dosage: 20 UNIT
     Route: 058
     Dates: start: 20190114, end: 20190114
  26. FURON                              /00032601/ [Concomitant]
     Active Substance: FUROSEMIDE
     Indication: HYPERTENSION
     Route: 048
     Dates: start: 2005, end: 20190113
  27. FURON                              /00032601/ [Concomitant]
     Active Substance: FUROSEMIDE
     Route: 048
     Dates: start: 20190117, end: 20190117
  28. RENVELA [Concomitant]
     Active Substance: SEVELAMER CARBONATE
     Indication: HYPERPHOSPHATAEMIA
     Route: 048
     Dates: start: 20180115, end: 20180115
  29. LANTUS [Concomitant]
     Active Substance: INSULIN GLARGINE
     Indication: DIABETES MELLITUS
     Dosage: 24 UNIT
     Route: 058
     Dates: start: 20190821
  30. IBRUTINIB [Suspect]
     Active Substance: IBRUTINIB
     Indication: CHRONIC LYMPHOCYTIC LEUKAEMIA
     Route: 048
     Dates: start: 20180925, end: 20190812
  31. MILURIT [Concomitant]
     Active Substance: ALLOPURINOL
     Indication: HYPERURICAEMIA
     Route: 048
     Dates: start: 20180713
  32. GLUCOPHAGE [Concomitant]
     Active Substance: METFORMIN HYDROCHLORIDE
     Indication: DIABETES MELLITUS
     Route: 048
     Dates: start: 2005, end: 20190113
  33. HUMULIN R [Concomitant]
     Active Substance: INSULIN HUMAN
     Dosage: 14 UNIT
     Route: 058
     Dates: start: 20190831

REACTIONS (1)
  - Cardiac failure [Recovered/Resolved]

NARRATIVE: CASE EVENT DATE: 20190815
